FAERS Safety Report 9305269 (Version 1)
Quarter: 2013Q2

REPORT INFORMATION
  Report Type: Spontaneous
  Country: US (occurrence: US)
  Receive Date: 20130523
  Receipt Date: 20130523
  Transmission Date: 20140414
  Serious: No
  Sender: FDA-Public Use
  Company Number: US-BAYER-2013-053117

PATIENT
  Age: 59 Year
  Sex: Female

DRUGS (1)
  1. MAGNEVIST [Suspect]
     Indication: MULTIPLE SCLEROSIS
     Dosage: 20 ML, ONCE
     Route: 042

REACTIONS (1)
  - Vomiting [None]
